FAERS Safety Report 18022888 (Version 2)
Quarter: 2020Q3

REPORT INFORMATION
  Report Type: Spontaneous
  Country: DE (occurrence: DE)
  Receive Date: 20200714
  Receipt Date: 20200811
  Transmission Date: 20201103
  Serious: Yes (Other)
  Sender: FDA-Public Use
  Company Number: DE-BAYER-2020-136674

PATIENT
  Age: 32 Year
  Sex: Male

DRUGS (2)
  1. NEXAVAR [Suspect]
     Active Substance: SORAFENIB
     Indication: ACUTE MYELOID LEUKAEMIA
     Dosage: 600 MG
     Dates: start: 20200518
  2. PROGRAF [Concomitant]
     Active Substance: TACROLIMUS
     Dosage: UNK
     Dates: end: 20200615

REACTIONS (3)
  - Product use in unapproved indication [None]
  - Thrombotic microangiopathy [Recovering/Resolving]
  - Off label use [None]

NARRATIVE: CASE EVENT DATE: 20200615
